FAERS Safety Report 24648955 (Version 1)
Quarter: 2024Q4

REPORT INFORMATION
  Report Type: Spontaneous
  Country: FR (occurrence: FR)
  Receive Date: 20241121
  Receipt Date: 20241121
  Transmission Date: 20250114
  Serious: Yes (Disabling)
  Sender: BIOMARIN
  Company Number: FR-BIOMARINAP-FR-2024-161936

PATIENT

DRUGS (3)
  1. NAGLAZYME [Suspect]
     Active Substance: GALSULFASE
     Indication: Mucopolysaccharidosis VI
     Dosage: 10 MILLIGRAM, QW
     Route: 042
     Dates: start: 20241002
  2. VITAMIN D [Concomitant]
     Active Substance: VITAMIN D NOS
     Indication: Product used for unknown indication
  3. EBASTINE [Concomitant]
     Active Substance: EBASTINE
     Indication: Premedication

REACTIONS (4)
  - Urticaria [Recovered/Resolved]
  - Hypersensitivity [Unknown]
  - Lower respiratory tract congestion [Unknown]
  - Upper respiratory tract congestion [Unknown]

NARRATIVE: CASE EVENT DATE: 20241108
